FAERS Safety Report 5372528-1 (Version None)
Quarter: 2007Q2

REPORT INFORMATION
  Report Type: 
  Country: None (occurrence: None)
  Receive Date: 20070627
  Receipt Date: 20070620
  Transmission Date: 20071010
  Serious: Yes (Other)
  Sender: FDA-Public Use
  Company Number: JP-ABBOTT-07P-087-0371721-00

PATIENT
  Age: 62 Year
  Sex: Female

DRUGS (4)
  1. SEVOFLURANE [Suspect]
     Indication: ANAESTHESIA
     Dosage: 1-5%
     Route: 055
  2. SEVOFLURANE [Suspect]
     Indication: MAINTENANCE OF ANAESTHESIA
  3. FENTANYL [Suspect]
     Indication: MAINTENANCE OF ANAESTHESIA
     Dosage: UNKNOWN
  4. NITROUS OXIDE W/ OXYGEN [Concomitant]
     Indication: ANAESTHESIA
     Dosage: UNKNOWN
     Route: 055

REACTIONS (2)
  - TORSADE DE POINTES [None]
  - VENTRICULAR TACHYCARDIA [None]
